FAERS Safety Report 8339834-X (Version None)
Quarter: 2012Q2

REPORT INFORMATION
  Report Type: 
  Country: None (occurrence: None)
  Receive Date: 20120507
  Receipt Date: 20120424
  Transmission Date: 20120825
  Serious: Yes (Other)
  Sender: FDA-Public Use
  Company Number: DK-JNJFOC-20111013151

PATIENT
  Age: 32 Year
  Sex: Female
  Weight: 56 kg

DRUGS (3)
  1. ZIPRASIDONE HYDROCHLORIDE [Suspect]
     Indication: PSYCHOTIC DISORDER
     Route: 065
     Dates: start: 20091225
  2. ZIPRASIDONE HYDROCHLORIDE [Suspect]
     Route: 065
     Dates: start: 20080201, end: 20090924
  3. RISPERDAL [Suspect]
     Indication: PRODUCT USED FOR UNKNOWN INDICATION
     Route: 065

REACTIONS (4)
  - SEDATION [None]
  - INFECTION [None]
  - TOURETTE'S DISORDER [None]
  - WEIGHT INCREASED [None]
